FAERS Safety Report 5115589-7 (Version None)
Quarter: 2006Q3

REPORT INFORMATION
  Report Type: 
  Country: None (occurrence: None)
  Receive Date: 20060925
  Receipt Date: 20060919
  Transmission Date: 20061208
  Serious: Yes (Life-Threatening, Hospitalization)
  Sender: FDA-Public Use
  Company Number: TAP2006Q01604

PATIENT
  Age: 47 Year
  Sex: Male

DRUGS (11)
  1. PREVACID [Suspect]
     Indication: PROPHYLAXIS
     Dosage: 30 MG, 1 IN 1 D, ORAL
     Route: 048
     Dates: start: 20060410
  2. HYDROMORPHONE HCL [Suspect]
     Dosage: 900 MG, 1 IN 1 D, ORAL
     Route: 048
     Dates: start: 20020101
  3. DEPAKOTE [Suspect]
     Indication: PROPHYLAXIS
     Dosage: 500 MG, 1 IN 1 D, ORAL
     Route: 048
     Dates: start: 20060330
  4. DEPAKOTE [Suspect]
     Indication: TRANSIENT ISCHAEMIC ATTACK
     Dosage: 500 MG, 1 IN 1 D, ORAL
     Route: 048
     Dates: start: 20060330
  5. KADIAN [Suspect]
     Dosage: 5 MG, 1 IN 1 D
     Dates: start: 20020101
  6. INVESTIGATIONAL DRUG (INVESTIGATIONAL DRUG) [Suspect]
     Indication: BREAKTHROUGH PAIN
     Dosage: 800 MCG, AS REQUIRED, BU
     Route: 002
     Dates: start: 20050523, end: 20060414
  7. CLONIDINE [Suspect]
     Indication: DRUG USE FOR UNKNOWN INDICATION
     Dosage: 50 MG, 1 IN 1 D, ORAL
     Route: 048
     Dates: start: 20020101
  8. NORTRIPTYLINE HCL [Suspect]
     Indication: MIGRAINE
     Dosage: 10 MG, 1 IN 1 D, ORAL
     Route: 048
     Dates: start: 20050808
  9. LISINOPRIL [Suspect]
     Indication: HYPERTENSION
     Dosage: 10 MG, 1 IN 1 D, ORAL
     Route: 048
     Dates: start: 20060410
  10. MORPHINE SULFATE [Suspect]
     Indication: DRUG USE FOR UNKNOWN INDICATION
     Dosage: 90 MG, 4 IN 1 D, ORAL
     Route: 048
     Dates: start: 20020101
  11. TEMAZEPAM [Suspect]
     Indication: INSOMNIA
     Dosage: 30 MG, 4 IN 1 D, ORAL
     Route: 048
     Dates: start: 20050806

REACTIONS (11)
  - EUPHORIC MOOD [None]
  - FATIGUE [None]
  - HYPERTENSION [None]
  - HYPOTENSION [None]
  - INSOMNIA [None]
  - INTENTIONAL DRUG MISUSE [None]
  - LOSS OF CONSCIOUSNESS [None]
  - MIGRAINE [None]
  - MULTIPLE DRUG OVERDOSE INTENTIONAL [None]
  - RESPIRATORY DISTRESS [None]
  - SUICIDE ATTEMPT [None]
